FAERS Safety Report 8976712 (Version 1)
Quarter: 2012Q4

REPORT INFORMATION
  Report Type: 
  Country: US (occurrence: US)
  Receive Date: 20121219
  Receipt Date: 20121219
  Transmission Date: 20130627
  Serious: No
  Sender: FDA-Public Use
  Company Number: US-AMGEN-USASP2012060013

PATIENT
  Sex: Female

DRUGS (1)
  1. PROLIA [Suspect]
     Indication: OSTEOPOROSIS POSTMENOPAUSAL
     Dosage: UNK UNK, q6mo
     Dates: start: 201204

REACTIONS (6)
  - Blood cholesterol increased [Not Recovered/Not Resolved]
  - High density lipoprotein increased [Not Recovered/Not Resolved]
  - Chapped lips [Not Recovered/Not Resolved]
  - Fungal infection [Not Recovered/Not Resolved]
  - Eczema [Not Recovered/Not Resolved]
  - Pain in extremity [Not Recovered/Not Resolved]
